FAERS Safety Report 17988906 (Version 1)
Quarter: 2020Q3

REPORT INFORMATION
  Report Type: Spontaneous
  Country: US (occurrence: US)
  Receive Date: 20200707
  Receipt Date: 20200707
  Transmission Date: 20201103
  Serious: Yes (Other)
  Sender: FDA-Public Use
  Company Number: US-SA-2020SA171992

PATIENT

DRUGS (2)
  1. ZOLPIDEM TARTRATE. [Suspect]
     Active Substance: ZOLPIDEM TARTRATE
     Dosage: 12.5 MG
     Route: 065
  2. AMBIEN CR [Suspect]
     Active Substance: ZOLPIDEM TARTRATE
     Indication: SOMNOLENCE
     Route: 065

REACTIONS (3)
  - Product availability issue [Unknown]
  - Drug ineffective [Unknown]
  - Drug dependence [Unknown]
